FAERS Safety Report 11683911 (Version 1)
Quarter: 2015Q4

REPORT INFORMATION
  Report Type: Spontaneous
  Country: US (occurrence: US)
  Receive Date: 20151029
  Receipt Date: 20151029
  Transmission Date: 20160304
  Serious: No
  Sender: FDA-Public Use
  Company Number: US-FRESENIUS MEDICAL CARE NORTH AMERICA-1043550

PATIENT
  Sex: Female

DRUGS (1)
  1. SALINE, 0.9%, 1L, 12PK [Suspect]
     Active Substance: SODIUM CHLORIDE

REACTIONS (2)
  - Hypotension [Recovered/Resolved]
  - Unresponsive to stimuli [Recovered/Resolved]

NARRATIVE: CASE EVENT DATE: 20151019
